FAERS Safety Report 25640373 (Version 1)
Quarter: 2025Q3

REPORT INFORMATION
  Report Type: Spontaneous
  Country: US (occurrence: None)
  Receive Date: 20250801
  Receipt Date: 20250801
  Transmission Date: 20251021
  Serious: Yes (Life-Threatening, Hospitalization)
  Sender: FDA-CTU
  Company Number: None

PATIENT
  Age: 39 Year
  Sex: Female
  Weight: 60.3 kg

DRUGS (1)
  1. VENOFER [Suspect]
     Active Substance: IRON SUCROSE
     Route: 042
     Dates: start: 20250718, end: 20250718

REACTIONS (9)
  - Skin discolouration [None]
  - Peripheral swelling [None]
  - Infusion related reaction [None]
  - Paraesthesia [None]
  - Rash macular [None]
  - Skin warm [None]
  - Peripheral coldness [None]
  - Nausea [None]
  - Dizziness [None]

NARRATIVE: CASE EVENT DATE: 20250718
